FAERS Safety Report 17938117 (Version 1)
Quarter: 2020Q2

REPORT INFORMATION
  Report Type: Spontaneous
  Country: FR (occurrence: FR)
  Receive Date: 20200624
  Receipt Date: 20200624
  Transmission Date: 20200714
  Serious: Yes (Hospitalization)
  Sender: FDA-Public Use
  Company Number: FR-MYLANLABS-2020M1057641

PATIENT
  Age: 33 Year
  Sex: Female

DRUGS (1)
  1. ETHINYLESTRADIOL/LEVONORGESTREL [Suspect]
     Active Substance: ETHINYL ESTRADIOL\LEVONORGESTREL
     Indication: CONTRACEPTION
     Dosage: 1 DF, QD (1 DOSAGE FORM EVERY 1DAY(S))
     Route: 048
     Dates: end: 201909

REACTIONS (1)
  - Periportal sinus dilatation [Recovering/Resolving]

NARRATIVE: CASE EVENT DATE: 201908
